APPROVED DRUG PRODUCT: ERYTHROCIN
Active Ingredient: ERYTHROMYCIN LACTOBIONATE
Strength: EQ 500MG BASE/VIAL
Dosage Form/Route: INJECTABLE;INJECTION
Application: A062638 | Product #001 | TE Code: AP
Applicant: HOSPIRA INC
Approved: Oct 31, 1986 | RLD: No | RS: No | Type: RX